FAERS Safety Report 16957057 (Version 1)
Quarter: 2019Q4

REPORT INFORMATION
  Report Type: Spontaneous
  Country: US (occurrence: US)
  Receive Date: 20191024
  Receipt Date: 20191024
  Transmission Date: 20200122
  Serious: Yes (Hospitalization)
  Sender: FDA-Public Use
  Company Number: US-VYERA PHARMACEUTICALS, LLC-2019VYE00054

PATIENT
  Age: 72 Year
  Sex: Male

DRUGS (11)
  1. PLAVIX [Concomitant]
     Active Substance: CLOPIDOGREL BISULFATE
  2. AMLODIPINE [Concomitant]
     Active Substance: AMLODIPINE BESYLATE
  3. KLOR-CON [Concomitant]
     Active Substance: POTASSIUM CHLORIDE
  4. DEXILANT [Concomitant]
     Active Substance: DEXLANSOPRAZOLE
  5. DARAPRIM [Suspect]
     Active Substance: PYRIMETHAMINE
     Indication: INFECTIOUS DISEASE CARRIER
     Dosage: 50 MG, 1X/DAY
     Route: 048
     Dates: start: 201510
  6. SUCRALFATE. [Concomitant]
     Active Substance: SUCRALFATE
  7. METOPROLOL. [Concomitant]
     Active Substance: METOPROLOL
  8. ISOSORBIDE. [Concomitant]
     Active Substance: ISOSORBIDE
  9. RESTASIS [Concomitant]
     Active Substance: CYCLOSPORINE
  10. ONDANSETRON [Concomitant]
     Active Substance: ONDANSETRON
  11. IRON [Concomitant]
     Active Substance: IRON

REACTIONS (1)
  - Cardiac disorder [Unknown]

NARRATIVE: CASE EVENT DATE: 20191010
